FAERS Safety Report 10742715 (Version 33)
Quarter: 2019Q3

REPORT INFORMATION
  Report Type: Report from Study
  Country: CA (occurrence: CA)
  Receive Date: 20150127
  Receipt Date: 20190917
  Transmission Date: 20191004
  Serious: Yes (Hospitalization, Other)
  Sender: FDA-Public Use
  Company Number: PHHY2015CA009132

PATIENT
  Age: 80 Year
  Sex: Female

DRUGS (6)
  1. SANDOSTATIN LAR DEPOT [Suspect]
     Active Substance: OCTREOTIDE ACETATE
     Indication: METASTASES TO LIVER
     Dosage: 60 MG, QMO (EVERY 4 WEEKS)
     Route: 030
     Dates: start: 20151002
  2. ATENOLOL. [Concomitant]
     Active Substance: ATENOLOL
     Indication: PRODUCT USED FOR UNKNOWN INDICATION
     Dosage: 100 MG, QD (ONCE DAILY)
     Route: 065
  3. MEPERIDINE [Suspect]
     Active Substance: MEPERIDINE
     Indication: PRODUCT USED FOR UNKNOWN INDICATION
     Route: 065
  4. LORAZEPAM. [Concomitant]
     Active Substance: LORAZEPAM
     Indication: NERVOUS SYSTEM DISORDER
     Route: 065
  5. SANDOSTATIN LAR DEPOT [Suspect]
     Active Substance: OCTREOTIDE ACETATE
     Indication: NEUROENDOCRINE TUMOUR
     Dosage: 30 MG, QMO (EVERY 4 WEEKS)
     Route: 030
     Dates: start: 20141125, end: 20150903
  6. SANDOSTATIN [Suspect]
     Active Substance: OCTREOTIDE ACETATE
     Indication: NEUROENDOCRINE TUMOUR
     Dosage: 50 UG, ONCE/SINGLE (TEST DOSE)
     Route: 058
     Dates: start: 20141113, end: 20141113

REACTIONS (32)
  - Blood pressure systolic increased [Unknown]
  - Heart rate abnormal [Unknown]
  - Depressed mood [Unknown]
  - Ocular neoplasm [Unknown]
  - Body temperature decreased [Unknown]
  - Pain [Unknown]
  - Deformity [Unknown]
  - Asthenia [Unknown]
  - Abdominal pain [Recovered/Resolved]
  - Intestinal obstruction [Unknown]
  - Hepatic neoplasm [Unknown]
  - Alopecia [Unknown]
  - Abdominal pain [Unknown]
  - Kidney infection [Recovered/Resolved]
  - Ear disorder [Unknown]
  - Balance disorder [Recovering/Resolving]
  - Flushing [Recovered/Resolved]
  - Decreased appetite [Unknown]
  - Hepatic lesion [Unknown]
  - Fatigue [Unknown]
  - Hepatic lesion [Recovered/Resolved]
  - Second primary malignancy [Unknown]
  - Cystitis [Unknown]
  - Blood pressure diastolic decreased [Recovered/Resolved]
  - Flank pain [Unknown]
  - Feeling abnormal [Unknown]
  - Malaise [Unknown]
  - Blood pressure fluctuation [Recovering/Resolving]
  - Abdominal discomfort [Unknown]
  - Product container issue [Unknown]
  - Heart rate decreased [Unknown]
  - Needle issue [Unknown]

NARRATIVE: CASE EVENT DATE: 20141128
